FAERS Safety Report 7509405-3 (Version None)
Quarter: 2011Q2

REPORT INFORMATION
  Report Type: 
  Country: None (occurrence: None)
  Receive Date: 20110527
  Receipt Date: 20110427
  Transmission Date: 20111010
  Serious: No
  Sender: FDA-Public Use
  Company Number: US-BAYER-2011-037685

PATIENT
  Sex: Female
  Weight: 91 kg

DRUGS (2)
  1. ALEVE [Suspect]
     Indication: MIGRAINE
     Dosage: BOTTLE COUNT 20S
     Route: 048
  2. SUGAR PILLS [Concomitant]
     Route: 048

REACTIONS (1)
  - NO ADVERSE EVENT [None]
